FAERS Safety Report 21362458 (Version 2)
Quarter: 2022Q3

REPORT INFORMATION
  Report Type: Report from Study
  Country: US (occurrence: US)
  Receive Date: 20220922
  Receipt Date: 20220930
  Transmission Date: 20221027
  Serious: No
  Sender: FDA-Public Use
  Company Number: US-ABBVIE-4128504

PATIENT
  Age: 53 Year
  Sex: Female

DRUGS (4)
  1. HUMIRA [Suspect]
     Active Substance: ADALIMUMAB
     Indication: Product used for unknown indication
     Route: 058
  2. MODERNA COVID-19 VACCINE [Concomitant]
     Active Substance: ELASOMERAN
     Indication: COVID-19 immunisation
     Dosage: ONCE , FIRST DOSE
     Route: 030
     Dates: start: 20210106, end: 20210106
  3. MODERNA COVID-19 VACCINE [Concomitant]
     Active Substance: ELASOMERAN
     Indication: COVID-19 immunisation
     Dosage: ONCE, SECOND DOSE
     Route: 030
     Dates: start: 20210223, end: 20210223
  4. MODERNA COVID-19 VACCINE [Concomitant]
     Active Substance: ELASOMERAN
     Indication: COVID-19 immunisation
     Dosage: ONCE, BOOSTER DOSE
     Route: 030
     Dates: start: 20211214, end: 20211214

REACTIONS (7)
  - Condition aggravated [Not Recovered/Not Resolved]
  - Therapeutic response shortened [Unknown]
  - Vomiting [Not Recovered/Not Resolved]
  - Malaise [Not Recovered/Not Resolved]
  - Pernicious anaemia [Unknown]
  - Pain [Not Recovered/Not Resolved]
  - Cold sweat [Unknown]

NARRATIVE: CASE EVENT DATE: 20220901
